FAERS Safety Report 8059966-3 (Version None)
Quarter: 2012Q1

REPORT INFORMATION
  Report Type: 
  Country: None (occurrence: None)
  Receive Date: 20120120
  Receipt Date: 20120119
  Transmission Date: 20120608
  Serious: No
  Sender: FDA-Public Use
  Company Number: US-B.I. PHARMACEUTICALS,INC./RIDGEFIELD-2012-BP-01184BP

PATIENT
  Sex: Male

DRUGS (20)
  1. ALLOPURINOL [Concomitant]
     Indication: GOUT
     Dosage: 300 MG
     Route: 048
  2. POTASSIUM CHLORIDE [Concomitant]
     Indication: SUPPLEMENTATION THERAPY
     Dosage: 750 MG
     Route: 048
  3. TIZANIDINE HCL [Concomitant]
     Indication: MUSCLE SPASMS
     Dosage: 2 MG
     Route: 048
  4. CELEBREX [Concomitant]
     Indication: PAIN
     Dosage: 200 MG
     Route: 048
  5. NEXIUM [Concomitant]
     Indication: GASTROOESOPHAGEAL REFLUX DISEASE
     Dosage: 40 MG
     Route: 048
  6. PRADAXA [Suspect]
     Dosage: 150 MG
     Route: 048
     Dates: start: 20120119
  7. LOSARTIN HCTZ [Concomitant]
     Indication: HYPERTENSION
     Route: 048
  8. COLCHICINE [Concomitant]
     Indication: GOUT
     Dosage: 0.5 MG
     Route: 048
  9. ZETIA [Concomitant]
     Indication: BLOOD CHOLESTEROL INCREASED
     Dosage: 10 MG
     Route: 048
     Dates: start: 20120101
  10. METFORMIN HCL [Concomitant]
     Indication: DIABETES MELLITUS
     Dosage: 500 MG
     Route: 048
  11. SINGULAIR [Concomitant]
     Indication: HYPERSENSITIVITY
     Dosage: 10 MG
     Route: 048
  12. METOLAZONE [Concomitant]
     Indication: FLUID RETENTION
     Dosage: 10 MG
     Route: 048
  13. FUROSEMIDE [Concomitant]
     Indication: FLUID RETENTION
     Dosage: 40 MG
     Route: 048
  14. ATROVENT [Concomitant]
     Indication: CHRONIC OBSTRUCTIVE PULMONARY DISEASE
     Dosage: 4 PUF
     Route: 055
  15. XYZAL [Concomitant]
     Indication: HYPERSENSITIVITY
     Dosage: 5 MG
     Route: 048
  16. GLYBURIDE [Concomitant]
     Indication: DIABETES MELLITUS
     Dosage: 2 MG
     Route: 048
  17. VENTOLIN [Concomitant]
     Indication: CHRONIC OBSTRUCTIVE PULMONARY DISEASE
     Dosage: 4 PUF
     Route: 055
  18. PRADAXA [Suspect]
     Indication: ATRIAL FIBRILLATION
     Dosage: 300 MG
     Route: 048
     Dates: start: 20111001, end: 20120118
  19. METOPROLOL TARTRATE [Concomitant]
     Indication: ATRIAL FIBRILLATION
     Dosage: 50 MG
     Route: 048
  20. AVODART [Concomitant]
     Indication: PROSTATOMEGALY
     Dosage: 0.5 MG
     Route: 048

REACTIONS (3)
  - ASTHENIA [None]
  - OEDEMA [None]
  - RENAL IMPAIRMENT [None]
